FAERS Safety Report 7027307-6 (Version None)
Quarter: 2010Q4

REPORT INFORMATION
  Report Type: 
  Country: None (occurrence: None)
  Receive Date: 20101004
  Receipt Date: 20100924
  Transmission Date: 20110411
  Serious: Yes (Death, Hospitalization, Other)
  Sender: FDA-Public Use
  Company Number: IE-PFIZER INC-2010122186

PATIENT
  Age: 84 Year
  Sex: Female

DRUGS (2)
  1. LIPITOR [Suspect]
     Indication: CARDIAC DISCOMFORT
     Dosage: UNK
     Dates: start: 20080101, end: 20090201
  2. LIPITOR [Suspect]
     Indication: BLOOD CHOLESTEROL

REACTIONS (6)
  - ARTHRALGIA [None]
  - DRUG INTERACTION [None]
  - POSTOPERATIVE WOUND INFECTION [None]
  - RENAL FAILURE [None]
  - RHABDOMYOLYSIS [None]
  - WOUND HAEMORRHAGE [None]
